FAERS Safety Report 15282231 (Version 2)
Quarter: 2018Q4

REPORT INFORMATION
  Report Type: Report from Study
  Country: None (occurrence: US)
  Receive Date: 20180815
  Receipt Date: 20181107
  Transmission Date: 20190204
  Serious: Yes (Hospitalization, Other)
  Sender: FDA-Public Use
  Company Number: US-ABBVIE-18K-163-2399069-00

PATIENT
  Age: 57 Year
  Sex: Female
  Weight: 108.96 kg

DRUGS (2)
  1. HUMIRA [Suspect]
     Active Substance: ADALIMUMAB
     Indication: CROHN^S DISEASE
     Route: 058
     Dates: start: 2016, end: 201706
  2. HUMIRA [Suspect]
     Active Substance: ADALIMUMAB
     Route: 058
     Dates: start: 20180719, end: 20180719

REACTIONS (16)
  - Dysstasia [Recovered/Resolved]
  - Musculoskeletal discomfort [Recovered/Resolved]
  - Rash [Not Recovered/Not Resolved]
  - Loss of consciousness [Recovered/Resolved]
  - Necrotising fasciitis [Recovered/Resolved]
  - Drug ineffective [Unknown]
  - Mobility decreased [Recovered/Resolved]
  - Fatigue [Unknown]
  - Intestinal fistula [Recovered/Resolved]
  - Skin bacterial infection [Recovered/Resolved]
  - Pain in extremity [Recovered/Resolved]
  - Vitamin D deficiency [Unknown]
  - Rash [Recovered/Resolved]
  - Crohn^s disease [Not Recovered/Not Resolved]
  - Musculoskeletal stiffness [Unknown]
  - Rash pruritic [Unknown]

NARRATIVE: CASE EVENT DATE: 2017
